FAERS Safety Report 22092853 (Version 1)
Quarter: 2023Q1

REPORT INFORMATION
  Report Type: Spontaneous
  Country: US (occurrence: None)
  Receive Date: 20230313
  Receipt Date: 20230313
  Transmission Date: 20230418
  Serious: No
  Sender: FDA-Public Use
  Company Number: None

PATIENT
  Sex: Female

DRUGS (3)
  1. FORTEO [Suspect]
     Active Substance: TERIPARATIDE
  2. JARDIANCE [Suspect]
     Active Substance: EMPAGLIFLOZIN
  3. TRULICITY [Suspect]
     Active Substance: DULAGLUTIDE

REACTIONS (5)
  - Contusion [None]
  - Pain [None]
  - Tenderness [None]
  - Rash macular [None]
  - Alopecia [None]
